FAERS Safety Report 16014419 (Version 5)
Quarter: 2019Q3

REPORT INFORMATION
  Report Type: Spontaneous
  Country: US (occurrence: US)
  Receive Date: 20190227
  Receipt Date: 20190702
  Transmission Date: 20191004
  Serious: Yes (Hospitalization, Other)
  Sender: FDA-Public Use
  Company Number: US-ASTRAZENECA-2018SF33556

PATIENT
  Age: 22412 Day
  Sex: Male
  Weight: 79.4 kg

DRUGS (53)
  1. PRILOSEC [Suspect]
     Active Substance: OMEPRAZOLE MAGNESIUM
     Indication: GASTROOESOPHAGEAL REFLUX DISEASE
     Route: 048
  2. CLONIDINE. [Concomitant]
     Active Substance: CLONIDINE
     Indication: HYPERTENSION
  3. FUROSEMIDE. [Concomitant]
     Active Substance: FUROSEMIDE
  4. NITROGLYCERIN. [Concomitant]
     Active Substance: NITROGLYCERIN
  5. AXID [Concomitant]
     Active Substance: NIZATIDINE
  6. CARVEDILOL. [Concomitant]
     Active Substance: CARVEDILOL
     Indication: HYPERTENSION
  7. INSULIN [Concomitant]
     Active Substance: INSULIN NOS
  8. FLUTICASONE. [Concomitant]
     Active Substance: FLUTICASONE
  9. RANITIDINE. [Concomitant]
     Active Substance: RANITIDINE
  10. NEXIUM [Suspect]
     Active Substance: ESOMEPRAZOLE MAGNESIUM
     Indication: GASTROOESOPHAGEAL REFLUX DISEASE
     Route: 048
     Dates: start: 20030101, end: 20180605
  11. NEXIUM [Suspect]
     Active Substance: ESOMEPRAZOLE MAGNESIUM
     Indication: GASTROOESOPHAGEAL REFLUX DISEASE
     Route: 048
     Dates: start: 20030101, end: 20180605
  12. NEXIUM 24HR [Suspect]
     Active Substance: ESOMEPRAZOLE MAGNESIUM
     Route: 048
  13. ROLAIDS [Concomitant]
     Active Substance: CALCIUM CARBONATE\MAGNESIUM HYDROXIDE
  14. ISOSORBIDE MONONITRATE. [Concomitant]
     Active Substance: ISOSORBIDE MONONITRATE
  15. PRILOSEC [Suspect]
     Active Substance: OMEPRAZOLE MAGNESIUM
     Indication: GASTROOESOPHAGEAL REFLUX DISEASE
     Route: 048
     Dates: start: 20030101, end: 20180605
  16. PREVACID 24 HR [Suspect]
     Active Substance: LANSOPRAZOLE
     Route: 065
  17. POTASSIUM CHLORIDE. [Concomitant]
     Active Substance: POTASSIUM CHLORIDE
  18. HYDRALAZINE [Concomitant]
     Active Substance: HYDRALAZINE HYDROCHLORIDE
  19. MIDAZOLAM [Concomitant]
     Active Substance: MIDAZOLAM HYDROCHLORIDE
  20. ANCEF [Concomitant]
     Active Substance: CEFAZOLIN SODIUM
  21. DOBUTAMINE [Concomitant]
     Active Substance: DOBUTAMINE HYDROCHLORIDE
  22. NEXIUM [Suspect]
     Active Substance: ESOMEPRAZOLE MAGNESIUM
     Indication: GASTROOESOPHAGEAL REFLUX DISEASE
     Dosage: GENERIC
     Route: 065
  23. PRILOSEC OTC [Suspect]
     Active Substance: OMEPRAZOLE MAGNESIUM
     Indication: GASTROOESOPHAGEAL REFLUX DISEASE
     Route: 048
  24. ATORVASTATIN [Concomitant]
     Active Substance: ATORVASTATIN
     Indication: BLOOD CHOLESTEROL INCREASED
  25. FUROSEMIDE. [Concomitant]
     Active Substance: FUROSEMIDE
     Indication: FLUID RETENTION
  26. ASPIRIN. [Concomitant]
     Active Substance: ASPIRIN
     Indication: HEADACHE
  27. TRANEXAMIC ACID. [Concomitant]
     Active Substance: TRANEXAMIC ACID
  28. PROAIR HFA [Concomitant]
     Active Substance: ALBUTEROL SULFATE
  29. DOPAMINE [Concomitant]
     Active Substance: DOPAMINE HYDROCHLORIDE
  30. FUROSEMIDE. [Concomitant]
     Active Substance: FUROSEMIDE
  31. NEXIUM [Suspect]
     Active Substance: ESOMEPRAZOLE MAGNESIUM
     Indication: GASTROOESOPHAGEAL REFLUX DISEASE
     Route: 048
  32. PRILOSEC [Suspect]
     Active Substance: OMEPRAZOLE MAGNESIUM
     Indication: GASTROOESOPHAGEAL REFLUX DISEASE
     Dosage: GENERIC
     Route: 065
  33. PRILOSEC OTC [Suspect]
     Active Substance: OMEPRAZOLE MAGNESIUM
     Indication: GASTROOESOPHAGEAL REFLUX DISEASE
     Route: 048
     Dates: start: 20030101, end: 20180605
  34. MULTI VITAMIN [Concomitant]
     Active Substance: VITAMINS
  35. FAMOTIDINE. [Concomitant]
     Active Substance: FAMOTIDINE
  36. NEOMYCIN. [Concomitant]
     Active Substance: NEOMYCIN
  37. ACETAMINOPHEN. [Concomitant]
     Active Substance: ACETAMINOPHEN
  38. ISOFLURANE. [Concomitant]
     Active Substance: ISOFLURANE
  39. PRILOSEC [Suspect]
     Active Substance: OMEPRAZOLE MAGNESIUM
     Indication: GASTROOESOPHAGEAL REFLUX DISEASE
     Route: 048
     Dates: start: 20030101, end: 20180605
  40. PRILOSEC OTC [Suspect]
     Active Substance: OMEPRAZOLE MAGNESIUM
     Indication: GASTROOESOPHAGEAL REFLUX DISEASE
     Route: 048
     Dates: start: 20130101, end: 20180506
  41. PREVACID [Suspect]
     Active Substance: LANSOPRAZOLE
     Route: 065
  42. DILTIAZEM. [Concomitant]
     Active Substance: DILTIAZEM
     Indication: HYPERTENSION
  43. FLUTICASONE. [Concomitant]
     Active Substance: FLUTICASONE
  44. CIMETIDINE [Concomitant]
     Active Substance: CIMETIDINE
  45. FUROSEMIDE. [Concomitant]
     Active Substance: FUROSEMIDE
  46. DILTIAZEM. [Concomitant]
     Active Substance: DILTIAZEM
  47. VENTOLIN [Concomitant]
     Active Substance: ALBUTEROL SULFATE
  48. PROPOFOL. [Concomitant]
     Active Substance: PROPOFOL
  49. HUMALOG [Concomitant]
     Active Substance: INSULIN LISPRO
  50. CARVEDILOL. [Concomitant]
     Active Substance: CARVEDILOL
  51. ATORVASTATIN [Concomitant]
     Active Substance: ATORVASTATIN
  52. HEPARIN [Concomitant]
     Active Substance: HEPARIN SODIUM
  53. CLONIDINE. [Concomitant]
     Active Substance: CLONIDINE

REACTIONS (4)
  - Renal injury [Unknown]
  - Nephrogenic anaemia [Unknown]
  - Chronic kidney disease [Not Recovered/Not Resolved]
  - Renal failure [Not Recovered/Not Resolved]

NARRATIVE: CASE EVENT DATE: 20170613
